FAERS Safety Report 7593717-1 (Version None)
Quarter: 2011Q3

REPORT INFORMATION
  Report Type: 
  Country: None (occurrence: None)
  Receive Date: 20110706
  Receipt Date: 20110622
  Transmission Date: 20111222
  Serious: Yes (Hospitalization)
  Sender: FDA-Public Use
  Company Number: PHHY2011IT55906

PATIENT
  Sex: Male

DRUGS (1)
  1. DICLOFENAC SODIUM [Suspect]

REACTIONS (4)
  - MELAENA [None]
  - HAEMATEMESIS [None]
  - SHOCK HAEMORRHAGIC [None]
  - DUODENAL ULCER [None]
